FAERS Safety Report 24196577 (Version 1)
Quarter: 2024Q3

REPORT INFORMATION
  Report Type: Spontaneous
  Country: US (occurrence: US)
  Receive Date: 20240810
  Receipt Date: 20240810
  Transmission Date: 20241017
  Serious: No
  Sender: VIIV
  Company Number: US-VIIV HEALTHCARE LIMITED-US2024095754

PATIENT
  Age: 67 Year
  Sex: Male

DRUGS (1)
  1. VOCABRIA [Suspect]
     Active Substance: CABOTEGRAVIR SODIUM
     Indication: Prophylaxis against HIV infection
     Dosage: 30 MG
     Route: 048
     Dates: start: 20240716

REACTIONS (2)
  - Constipation [Not Recovered/Not Resolved]
  - Change of bowel habit [Unknown]

NARRATIVE: CASE EVENT DATE: 20240701
